FAERS Safety Report 8134467-2 (Version None)
Quarter: 2012Q1

REPORT INFORMATION
  Report Type: 
  Country: None (occurrence: None)
  Receive Date: 20120214
  Receipt Date: 20120214
  Transmission Date: 20120608
  Serious: Yes (Hospitalization)
  Sender: FDA-Public Use
  Company Number: None

PATIENT
  Age: 68 Year
  Sex: Male
  Weight: 90.718 kg

DRUGS (1)
  1. LISINOPRIL [Suspect]
     Indication: BLOOD PRESSURE
     Dosage: 10 MG
     Dates: start: 20050101, end: 20120211

REACTIONS (3)
  - DRUG HYPERSENSITIVITY [None]
  - SWOLLEN TONGUE [None]
  - LOCAL SWELLING [None]
